FAERS Safety Report 13966713 (Version 1)
Quarter: 2017Q3

REPORT INFORMATION
  Report Type: Spontaneous
  Country: US (occurrence: US)
  Receive Date: 20170913
  Receipt Date: 20170913
  Transmission Date: 20171128
  Serious: Yes (Disabling)
  Sender: FDA-Public Use
  Company Number: None

PATIENT
  Age: 66 Year
  Sex: Male
  Weight: 88.2 kg

DRUGS (14)
  1. MUCINEX [Suspect]
     Active Substance: GUAIFENESIN
     Indication: NASOPHARYNGITIS
     Dosage: ?          QUANTITY:1 TABLET(S);?
     Route: 048
     Dates: start: 20170908, end: 20170910
  2. SINEMET [Concomitant]
     Active Substance: CARBIDOPA\LEVODOPA
  3. SIMVASTATIN. [Concomitant]
     Active Substance: SIMVASTATIN
  4. FINASTERIDE. [Concomitant]
     Active Substance: FINASTERIDE
  5. MYRBETRIQ [Concomitant]
     Active Substance: MIRABEGRON
  6. TRIAMTERINE/HYDROCHLORTHLAZIDE [Concomitant]
  7. PANTOPRAZOLE [Concomitant]
     Active Substance: PANTOPRAZOLE
  8. ALLOPURINOL. [Concomitant]
     Active Substance: ALLOPURINOL
  9. DOXAZOSIN [Concomitant]
     Active Substance: DOXAZOSIN\DOXAZOSIN MESYLATE
  10. MELATONIN [Concomitant]
     Active Substance: MELATONIN
  11. TAMSULOSIN [Concomitant]
     Active Substance: TAMSULOSIN
  12. RASAGILINE. [Concomitant]
     Active Substance: RASAGILINE
  13. VITAMIN D [Concomitant]
     Active Substance: CHOLECALCIFEROL
  14. PRAMIPEXOLE. [Concomitant]
     Active Substance: PRAMIPEXOLE

REACTIONS (3)
  - Condition aggravated [None]
  - Sleep disorder [None]
  - Hypertonic bladder [None]

NARRATIVE: CASE EVENT DATE: 20170910
